FAERS Safety Report 5045784-7 (Version None)
Quarter: 2006Q3

REPORT INFORMATION
  Report Type: 
  Country: None (occurrence: None)
  Receive Date: 20060710
  Receipt Date: 20060628
  Transmission Date: 20061208
  Serious: Yes (Disabling, Other)
  Sender: FDA-Public Use
  Company Number: PHEH2006US08437

PATIENT
  Age: 53 Year
  Sex: Female
  Weight: 74.829 kg

DRUGS (3)
  1. LAMISIL [Suspect]
     Indication: NAIL TINEA
     Dosage: 250 MG, QD
     Route: 048
     Dates: start: 20060527, end: 20060622
  2. MIRALAX [Concomitant]
     Indication: CONSTIPATION
     Dosage: UNK, QD
     Route: 048
  3. COLACE [Concomitant]
     Indication: CONSTIPATION
     Dosage: 200 MG, QD
     Route: 048

REACTIONS (6)
  - BLOOD CREATINE PHOSPHOKINASE INCREASED [None]
  - HAEMATOCRIT DECREASED [None]
  - MYALGIA [None]
  - PAIN IN EXTREMITY [None]
  - PLATELET COUNT DECREASED [None]
  - RHABDOMYOLYSIS [None]
